FAERS Safety Report 18715292 (Version 2)
Quarter: 2021Q1

REPORT INFORMATION
  Report Type: Report from Study
  Country: US (occurrence: US)
  Receive Date: 20210108
  Receipt Date: 20210118
  Transmission Date: 20210419
  Serious: No
  Sender: FDA-Public Use
  Company Number: NVSC2021US003121

PATIENT
  Sex: Female
  Weight: 51.61 kg

DRUGS (2)
  1. TREPROSTINIL. [Suspect]
     Active Substance: TREPROSTINIL
     Indication: PULMONARY ARTERIAL HYPERTENSION
     Dosage: 8.5 NG/KG/MIN
     Route: 042
     Dates: start: 20201231
  2. TREPROSTINIL. [Suspect]
     Active Substance: TREPROSTINIL
     Dosage: 8.6 NG/KG/MIN
     Route: 042
     Dates: start: 20201231

REACTIONS (5)
  - Headache [Unknown]
  - Pain in jaw [Unknown]
  - Hypotension [Unknown]
  - Diarrhoea [Unknown]
  - Back pain [Unknown]
